FAERS Safety Report 6279791-3 (Version None)
Quarter: 2009Q3

REPORT INFORMATION
  Report Type: 
  Country: None (occurrence: None)
  Receive Date: 20090723
  Receipt Date: 20090715
  Transmission Date: 20100115
  Serious: Yes (Death)
  Sender: FDA-Public Use
  Company Number: US-PFIZER INC-2009227864

PATIENT
  Sex: Male

DRUGS (2)
  1. CAMPTOSAR [Suspect]
     Indication: OESOPHAGEAL CANCER METASTATIC
     Dosage: 200 MG CYCLES OF TWO WEEKS ON AND ONE WEEK OFF
     Route: 042
     Dates: start: 20090318, end: 20090602
  2. PLATINOL [Concomitant]
     Dosage: CYCLES OF TWO WEEKS ON AND ONE WEEK OFF

REACTIONS (2)
  - DISEASE PROGRESSION [None]
  - OESOPHAGEAL CANCER METASTATIC [None]
